FAERS Safety Report 14402197 (Version 1)
Quarter: 2018Q1

REPORT INFORMATION
  Report Type: Spontaneous
  Country: US (occurrence: US)
  Receive Date: 20180117
  Receipt Date: 20180117
  Transmission Date: 20180509
  Serious: No
  Sender: FDA-Public Use
  Company Number: US-JNJFOC-20171212309

PATIENT
  Age: 56 Year
  Sex: Female
  Weight: 89.36 kg

DRUGS (2)
  1. TREMFYA [Suspect]
     Active Substance: GUSELKUMAB
     Indication: PSORIASIS
     Route: 058
     Dates: start: 201711
  2. ADVIL [Concomitant]
     Active Substance: IBUPROFEN
     Indication: HEADACHE

REACTIONS (2)
  - Liquid product physical issue [Unknown]
  - Drug dose omission [Not Recovered/Not Resolved]

NARRATIVE: CASE EVENT DATE: 20171207
